APPROVED DRUG PRODUCT: APOKYN
Active Ingredient: APOMORPHINE HYDROCHLORIDE
Strength: 30MG/3ML (10MG/ML)
Dosage Form/Route: INJECTABLE;SUBCUTANEOUS
Application: N021264 | Product #002 | TE Code: AP
Applicant: MDD US OPERATIONS LLC
Approved: Apr 20, 2004 | RLD: Yes | RS: Yes | Type: RX